FAERS Safety Report 20197560 (Version 1)
Quarter: 2021Q4

REPORT INFORMATION
  Report Type: Spontaneous
  Country: US (occurrence: US)
  Receive Date: 20211217
  Receipt Date: 20211217
  Transmission Date: 20220303
  Serious: No
  Sender: FDA-Public Use
  Company Number: US-ORG100016242-2021000554

PATIENT
  Age: 41 Year
  Sex: Female

DRUGS (1)
  1. EXPAREL [Suspect]
     Active Substance: BUPIVACAINE
     Dosage: 1 TO LESS THAN 3 ML

REACTIONS (5)
  - Eyelid pain [Recovered/Resolved]
  - Eye irritation [Recovered/Resolved]
  - Accidental exposure to product [Recovered/Resolved]
  - Dysgeusia [Recovered/Resolved]
  - Headache [Recovered/Resolved]

NARRATIVE: CASE EVENT DATE: 20211021
